FAERS Safety Report 18040132 (Version 3)
Quarter: 2020Q3

REPORT INFORMATION
  Report Type: Spontaneous
  Country: US (occurrence: US)
  Receive Date: 20200717
  Receipt Date: 20200918
  Transmission Date: 20201103
  Serious: Yes (Hospitalization, Other)
  Sender: FDA-Public Use
  Company Number: US-ASTRAZENECA-2020SE88577

PATIENT
  Sex: Male
  Weight: 66.7 kg

DRUGS (5)
  1. POTASSIUM [Concomitant]
     Active Substance: POTASSIUM
     Route: 065
  2. ALBUTEROL. [Concomitant]
     Active Substance: ALBUTEROL
     Route: 065
  3. BEVESPI AEROSPHERE [Suspect]
     Active Substance: FORMOTEROL FUMARATE\GLYCOPYRROLATE
     Indication: CHRONIC OBSTRUCTIVE PULMONARY DISEASE
     Dosage: 9UG/INHAL TWO TIMES A DAY
     Route: 055
     Dates: start: 20200429
  4. FUROSEMIDE. [Concomitant]
     Active Substance: FUROSEMIDE
  5. LASIX [Concomitant]
     Active Substance: FUROSEMIDE
     Route: 065

REACTIONS (13)
  - Pneumonia [Unknown]
  - Pulmonary oedema [Unknown]
  - Renal failure [Not Recovered/Not Resolved]
  - Pain in extremity [Unknown]
  - Abdominal distension [Unknown]
  - Device issue [Unknown]
  - Pleural effusion [Unknown]
  - Blood pressure decreased [Unknown]
  - Intentional device misuse [Unknown]
  - Hypotension [Unknown]
  - Swelling [Unknown]
  - Wrong technique in device usage process [Unknown]
  - Hypophagia [Unknown]
